FAERS Safety Report 17655121 (Version 1)
Quarter: 2020Q2

REPORT INFORMATION
  Report Type: Spontaneous
  Country: US (occurrence: US)
  Receive Date: 20200409
  Receipt Date: 20200409
  Transmission Date: 20200713
  Serious: Yes (Disabling)
  Sender: FDA-Public Use
  Company Number: None

PATIENT
  Age: 59 Year
  Sex: Female
  Weight: 92.25 kg

DRUGS (6)
  1. BACLOFIN [Concomitant]
  2. PATADAY [Suspect]
     Active Substance: OLOPATADINE HYDROCHLORIDE
     Indication: EYE ALLERGY
     Dosage: ?          QUANTITY:1 DROP(S);?
     Route: 047
  3. CELEBREX [Concomitant]
     Active Substance: CELECOXIB
  4. PRISTIQ EXTENDED-RELEASE [Concomitant]
     Active Substance: DESVENLAFAXINE SUCCINATE
  5. AMBIEN [Concomitant]
     Active Substance: ZOLPIDEM TARTRATE
  6. TYLENOL [Concomitant]
     Active Substance: ACETAMINOPHEN

REACTIONS (5)
  - Headache [None]
  - Nausea [None]
  - Nasal congestion [None]
  - Dizziness [None]
  - Rhinorrhoea [None]

NARRATIVE: CASE EVENT DATE: 20200408
